FAERS Safety Report 8053675-2 (Version None)
Quarter: 2012Q1

REPORT INFORMATION
  Report Type: 
  Country: None (occurrence: None)
  Receive Date: 20120118
  Receipt Date: 20120111
  Transmission Date: 20120608
  Serious: Yes (Hospitalization)
  Sender: FDA-Public Use
  Company Number: PHHO2011US09673

PATIENT
  Sex: Female
  Weight: 43.1 kg

DRUGS (6)
  1. DOCETAXEL [Suspect]
     Indication: BREAST CANCER
     Dosage: 75 MG, QD
     Route: 042
     Dates: start: 20110518, end: 20110518
  2. DOXORUBICIN HCL [Suspect]
     Indication: BREAST CANCER
     Dosage: 65 MG, QD
     Route: 042
     Dates: start: 20110518, end: 20110518
  3. CYCLOPHOSPHAMIDE [Suspect]
     Indication: BREAST CANCER
     Dosage: 650 MG, QD
     Route: 042
     Dates: start: 20110518, end: 20110518
  4. VITAMIN D [Concomitant]
     Dosage: UNK
  5. NO TREATMENT RECEIVED [Suspect]
     Indication: BREAST CANCER METASTATIC
     Dosage: NO TREATMENT RECEIVED
  6. CALCIUM [Concomitant]
     Dosage: UNK

REACTIONS (2)
  - HYPOVOLAEMIA [None]
  - HYPONATRAEMIA [None]
